FAERS Safety Report 5293571-7 (Version None)
Quarter: 2007Q2

REPORT INFORMATION
  Report Type: 
  Country: None (occurrence: None)
  Receive Date: 20070411
  Receipt Date: 20070329
  Transmission Date: 20071010
  Serious: Yes (Hospitalization)
  Sender: FDA-Public Use
  Company Number: AU-GLAXOSMITHKLINE-B0465386A

PATIENT
  Age: 69 Year
  Sex: Female

DRUGS (4)
  1. CARTIA XT [Suspect]
     Indication: ANTICOAGULANT THERAPY
     Route: 048
     Dates: start: 20070218, end: 20070322
  2. AVAPRO [Concomitant]
     Route: 065
  3. PRAVACHOL [Concomitant]
     Indication: BLOOD CHOLESTEROL INCREASED
     Route: 065
  4. UNKNOWN [Concomitant]
     Indication: THYROID DISORDER
     Route: 065

REACTIONS (2)
  - DIVERTICULUM [None]
  - HAEMATOCHEZIA [None]
